FAERS Safety Report 13884458 (Version 1)
Quarter: 2017Q3

REPORT INFORMATION
  Report Type: Spontaneous
  Country: US (occurrence: US)
  Receive Date: 20170821
  Receipt Date: 20170821
  Transmission Date: 20171127
  Serious: No
  Sender: FDA-Public Use
  Company Number: US-TEVA-764891ACC

PATIENT
  Sex: Female

DRUGS (1)
  1. FLUOXETINE [Suspect]
     Active Substance: FLUOXETINE HYDROCHLORIDE
     Indication: DEPRESSION
     Dates: start: 20170404

REACTIONS (5)
  - Pain [Unknown]
  - Rhinorrhoea [Unknown]
  - Throat irritation [Unknown]
  - Memory impairment [Unknown]
  - Pruritus [Unknown]

NARRATIVE: CASE EVENT DATE: 20170411
